FAERS Safety Report 19370151 (Version 2)
Quarter: 2022Q1

REPORT INFORMATION
  Report Type: Spontaneous
  Country: ES (occurrence: ES)
  Receive Date: 20210604
  Receipt Date: 20220112
  Transmission Date: 20220423
  Serious: Yes (Other)
  Sender: FDA-Public Use
  Company Number: ES-STADA-225391

PATIENT
  Age: 32 Year
  Sex: Female

DRUGS (5)
  1. MOXIFLOXACIN [Suspect]
     Active Substance: MOXIFLOXACIN
     Indication: Atypical pneumonia
     Dosage: 400 MILLIGRAM, ONCE A DAY
     Route: 048
  2. AZITHROMYCIN [Concomitant]
     Active Substance: AZITHROMYCIN
     Indication: Evidence based treatment
     Dosage: UNK
     Route: 065
  3. CEFTRIAXONE [Concomitant]
     Active Substance: CEFTRIAXONE
     Indication: Evidence based treatment
     Dosage: UNK
     Route: 065
  4. PILOCARPINE [Concomitant]
     Active Substance: PILOCARPINE
     Indication: Iris transillumination defect
     Dosage: DILUTED TO 0.125%, AND TO A CONCENTRATION HIGHER THAN 2%
     Route: 065
  5. TAMIFLU [Concomitant]
     Active Substance: OSELTAMIVIR PHOSPHATE
     Indication: Influenza
     Dosage: UNK
     Route: 065

REACTIONS (2)
  - Iris transillumination defect [Not Recovered/Not Resolved]
  - Therapy non-responder [Unknown]
